FAERS Safety Report 7306197-8 (Version None)
Quarter: 2011Q1

REPORT INFORMATION
  Report Type: 
  Country: None (occurrence: None)
  Receive Date: 20110222
  Receipt Date: 20110209
  Transmission Date: 20110831
  Serious: Yes (Other)
  Sender: FDA-Public Use
  Company Number: PHHY2011GB10346

PATIENT
  Age: 74 Year
  Sex: Male

DRUGS (8)
  1. CLARITHROMYCIN [Suspect]
     Route: 048
     Dates: start: 20110121, end: 20110125
  2. ASPIRIN [Concomitant]
     Dosage: UNK
  3. BISOPROLOL FUMARATE [Concomitant]
     Dosage: UNK
  4. SERTRALINE [Concomitant]
     Dosage: UNK
  5. ATORVASTATIN [Concomitant]
     Dosage: UNK
  6. CANDESARTAN CILEXETIL [Concomitant]
     Dosage: UNK
  7. ISOSORBIDE MONONITRATE [Concomitant]
     Dosage: UNK
  8. NICORANDIL [Concomitant]
     Dosage: UNK

REACTIONS (2)
  - NODAL ARRHYTHMIA [None]
  - CARDIOVASCULAR INSUFFICIENCY [None]
